FAERS Safety Report 6399517-2 (Version None)
Quarter: 2009Q4

REPORT INFORMATION
  Report Type: 
  Country: None (occurrence: None)
  Receive Date: 20091013
  Receipt Date: 20091013
  Transmission Date: 20100525
  Serious: Yes (Hospitalization)
  Sender: FDA-Public Use
  Company Number: None

PATIENT
  Sex: Male

DRUGS (1)
  1. REVLIMID [Suspect]
     Indication: PROSTATE CANCER
     Dosage: 25 MG QD 21 P.O.
     Route: 048
     Dates: start: 20090617

REACTIONS (3)
  - DEHYDRATION [None]
  - HYPOPHAGIA [None]
  - URINARY TRACT INFECTION [None]
